FAERS Safety Report 5394209-0 (Version None)
Quarter: 2007Q3

REPORT INFORMATION
  Report Type: 
  Country: None (occurrence: None)
  Receive Date: 20070723
  Receipt Date: 20070416
  Transmission Date: 20080115
  Serious: No
  Sender: FDA-Public Use
  Company Number: A0647711A

PATIENT
  Sex: Female

DRUGS (1)
  1. AVANDIA [Suspect]
     Dates: start: 20070413

REACTIONS (4)
  - DIZZINESS [None]
  - MALAISE [None]
  - PRESYNCOPE [None]
  - VOMITING [None]
